FAERS Safety Report 6693608-4 (Version None)
Quarter: 2010Q2

REPORT INFORMATION
  Report Type: 
  Country: None (occurrence: None)
  Receive Date: 20100423
  Receipt Date: 20100421
  Transmission Date: 20101027
  Serious: Yes (Other)
  Sender: FDA-Public Use
  Company Number: US-RB-007576-10

PATIENT
  Age: 79 Year
  Sex: Female

DRUGS (1)
  1. MUCINEX [Suspect]
     Indication: EAR CONGESTION
     Dosage: TAKEN ONE TABLET EVERY 12 HOURS SINCE MONDAY
     Route: 048
     Dates: start: 20100419

REACTIONS (1)
  - HAEMORRHAGE [None]
